FAERS Safety Report 8374426-8 (Version None)
Quarter: 2012Q2

REPORT INFORMATION
  Report Type: 
  Country: None (occurrence: None)
  Receive Date: 20120521
  Receipt Date: 20120514
  Transmission Date: 20120825
  Serious: Yes (Other)
  Sender: FDA-Public Use
  Company Number: US-TEVA-338044USA

PATIENT
  Sex: Male
  Weight: 99.88 kg

DRUGS (6)
  1. ASPIRIN [Suspect]
     Indication: ANTICOAGULANT THERAPY
  2. ATORVASTATIN CALCIUM [Suspect]
     Dosage: 10 MILLIGRAM;
     Route: 048
  3. INSULIN GLARGINE [Concomitant]
     Indication: DIABETES MELLITUS
     Dosage: 45 IU (INTERNATIONAL UNIT);
  4. WARFARIN SODIUM [Suspect]
     Dosage: HALF TO ONE TABLET OF 1 MG DAILY
     Route: 048
  5. INSULIN [Concomitant]
     Indication: DIABETES MELLITUS
  6. METOPROLOL SUCCINATE [Concomitant]
     Indication: HYPERTENSION
     Dosage: 50 MILLIGRAM;

REACTIONS (2)
  - BLOOD TEST ABNORMAL [None]
  - BLOOD DISORDER [None]
